FAERS Safety Report 11087919 (Version 2)
Quarter: 2019Q1

REPORT INFORMATION
  Report Type: Report from Study
  Country: CA (occurrence: CA)
  Receive Date: 20150504
  Receipt Date: 20190305
  Transmission Date: 20190417
  Serious: Yes (Hospitalization)
  Sender: FDA-Public Use
  Company Number: PHHY2015CA031008

PATIENT
  Sex: Female

DRUGS (3)
  1. NEORAL [Suspect]
     Active Substance: CYCLOSPORINE
     Indication: PRODUCT USED FOR UNKNOWN INDICATION
     Dosage: UNK
     Route: 065
  2. XOLAIR [Suspect]
     Active Substance: OMALIZUMAB
     Indication: ECZEMA
     Dosage: 150 MG, EVERY 4 WEEKS
     Route: 058
     Dates: start: 20150113
  3. XOLAIR [Suspect]
     Active Substance: OMALIZUMAB
     Dosage: 150 MG, BIW
     Route: 058
     Dates: start: 20150113

REACTIONS (7)
  - Speech disorder [Unknown]
  - Pruritus generalised [Unknown]
  - Anaemia [Unknown]
  - Drug resistance [Unknown]
  - Eczema [Recovering/Resolving]
  - Product use in unapproved indication [Unknown]
  - Quality of life decreased [Unknown]
